FAERS Safety Report 20696383 (Version 2)
Quarter: 2022Q2

REPORT INFORMATION
  Report Type: Spontaneous
  Country: US (occurrence: None)
  Receive Date: 20220411
  Receipt Date: 20220525
  Transmission Date: 20220721
  Serious: No
  Sender: FDA-Public Use
  Company Number: 2022A128562

PATIENT
  Sex: Female
  Weight: 52.2 kg

DRUGS (1)
  1. BUDESONIDE\FORMOTEROL\GLYCOPYRRONIUM [Suspect]
     Active Substance: BUDESONIDE\FORMOTEROL\GLYCOPYRRONIUM
     Indication: Chronic obstructive pulmonary disease
     Dosage: 160MCG/9MCG/4.8MCG, 120 INHALATIONS
     Route: 055

REACTIONS (4)
  - Visual impairment [Unknown]
  - Body height decreased [Unknown]
  - Device malfunction [Unknown]
  - Device use issue [Unknown]
